FAERS Safety Report 11082811 (Version 1)
Quarter: 2015Q2

REPORT INFORMATION
  Report Type: Spontaneous
  Country: US (occurrence: US)
  Receive Date: 20150501
  Receipt Date: 20150501
  Transmission Date: 20150821
  Serious: No
  Sender: FDA-Public Use
  Company Number: US-ABBVIE-14P-163-1294414-00

PATIENT
  Age: 50 Year
  Sex: Male
  Weight: 95.34 kg

DRUGS (1)
  1. ANDROGEL [Suspect]
     Active Substance: TESTOSTERONE
     Indication: PRODUCT USED FOR UNKNOWN INDICATION
     Dosage: 3 PUMPS DAILY
     Route: 061
     Dates: start: 20140919, end: 20141005

REACTIONS (3)
  - Application site rash [Recovering/Resolving]
  - Application site discomfort [Recovering/Resolving]
  - Application site irritation [Recovering/Resolving]

NARRATIVE: CASE EVENT DATE: 20140926
